FAERS Safety Report 7096149-8 (Version None)
Quarter: 2010Q4

REPORT INFORMATION
  Report Type: 
  Country: None (occurrence: None)
  Receive Date: 20101111
  Receipt Date: 20101102
  Transmission Date: 20110411
  Serious: Yes (Life-Threatening, Other)
  Sender: FDA-Public Use
  Company Number: CA-JNJFOC-20100501326

PATIENT
  Sex: Male
  Weight: 103 kg

DRUGS (3)
  1. REMICADE [Suspect]
     Indication: CROHN'S DISEASE
     Dosage: 51 INFUSIONS
     Route: 042
     Dates: start: 20080124, end: 20100303
  2. AZATHIOPRINE [Concomitant]
  3. LOMOTIL [Concomitant]

REACTIONS (1)
  - LUNG CANCER METASTATIC [None]
